FAERS Safety Report 9242388 (Version 2)
Quarter: 2013Q2

REPORT INFORMATION
  Report Type: Spontaneous
  Country: JP (occurrence: JP)
  Receive Date: 20130419
  Receipt Date: 20130429
  Transmission Date: 20140414
  Serious: Yes (Other)
  Sender: FDA-Public Use
  Company Number: PHHY2013JP037695

PATIENT
  Age: 36 Year
  Sex: Female

DRUGS (3)
  1. CICLOSPORIN [Suspect]
     Indication: APLASIA PURE RED CELL
  2. PREDNISOLONE [Concomitant]
     Indication: SYSTEMIC LUPUS ERYTHEMATOSUS
     Dosage: 60 MG, UNK
     Dates: start: 1988
  3. CYCLOPHOSPHAMIDE [Concomitant]
     Indication: LUPUS NEPHRITIS
     Route: 042

REACTIONS (3)
  - Herpes zoster [Unknown]
  - Aplasia pure red cell [Recovering/Resolving]
  - Drug ineffective [Unknown]
